FAERS Safety Report 11777735 (Version 1)
Quarter: 2015Q4

REPORT INFORMATION
  Report Type: Spontaneous
  Country: GB (occurrence: GB)
  Receive Date: 20151125
  Receipt Date: 20151125
  Transmission Date: 20160304
  Serious: Yes (Hospitalization)
  Sender: FDA-Public Use
  Company Number: GB-PFIZER INC-2015389755

PATIENT
  Sex: Female
  Weight: 3.28 kg

DRUGS (2)
  1. EPANUTIN [Suspect]
     Active Substance: PHENYTOIN SODIUM
     Dosage: 10 MG/KG, UNK (DILUTED WITH STERILE WATER, ADMINISTERED OVER 30 MIN (0.2 ML/MIN) BY A SYRINGE PUMP)
     Route: 042
  2. PHENOBARBITONE [Concomitant]
     Active Substance: PHENOBARBITAL
     Indication: SEIZURE
     Dosage: UNK
     Route: 042

REACTIONS (5)
  - Blister [Recovered/Resolved]
  - Soft tissue injury [Recovered/Resolved]
  - Product preparation error [Unknown]
  - Injection site discolouration [Recovered/Resolved]
  - Oedema peripheral [Recovered/Resolved]
